FAERS Safety Report 14308591 (Version 4)
Quarter: 2018Q1

REPORT INFORMATION
  Report Type: Spontaneous
  Country: CA (occurrence: CA)
  Receive Date: 20171220
  Receipt Date: 20180306
  Transmission Date: 20180509
  Serious: Yes (Hospitalization, Other)
  Sender: FDA-Public Use
  Company Number: CA-CELLTRION INC.-2017CA011793

PATIENT

DRUGS (6)
  1. INFLECTRA [Suspect]
     Active Substance: INFLIXIMAB-DYYB
     Dosage: 500 MG 0, 2, 6 WEEKS, THEN EVERY 8 WEEKS
     Route: 042
     Dates: start: 20171011
  2. INFLECTRA [Suspect]
     Active Substance: INFLIXIMAB-DYYB
     Dosage: 500 MG
     Route: 065
  3. INFLECTRA [Suspect]
     Active Substance: INFLIXIMAB-DYYB
     Dosage: 5MG PER KG,EVERY 0, 2, 6 WEEKS, THEN EVERY 8WEEKS
     Route: 042
  4. INFLECTRA [Suspect]
     Active Substance: INFLIXIMAB-DYYB
     Indication: CROHN^S DISEASE
     Dosage: 5MG PER KG,EVERY 0, 2, 6 WEEKS, THEN EVERY 8WEEKS
     Route: 042
     Dates: start: 20170825
  5. FOLIC ACID. [Concomitant]
     Active Substance: FOLIC ACID
     Dosage: UNK
  6. LAX-A-DAY [Concomitant]
     Dosage: UNK

REACTIONS (15)
  - Mouth ulceration [Not Recovered/Not Resolved]
  - Lip ulceration [Unknown]
  - Feeling cold [Recovered/Resolved]
  - Diverticulitis [Unknown]
  - Hyperhidrosis [Not Recovered/Not Resolved]
  - Fatigue [Unknown]
  - Skin disorder [Not Recovered/Not Resolved]
  - Rash [Not Recovered/Not Resolved]
  - Rash erythematous [Unknown]
  - Weight decreased [Not Recovered/Not Resolved]
  - Pain [Recovered/Resolved]
  - Plasma cell myeloma [Not Recovered/Not Resolved]
  - Anal abscess [Not Recovered/Not Resolved]
  - Dysphagia [Unknown]
  - Chills [Not Recovered/Not Resolved]

NARRATIVE: CASE EVENT DATE: 20170825
